FAERS Safety Report 4820756-3 (Version None)
Quarter: 2005Q4

REPORT INFORMATION
  Report Type: 
  Country: None (occurrence: None)
  Receive Date: 20051103
  Receipt Date: 20051025
  Transmission Date: 20060501
  Serious: Yes (Hospitalization, Disabling)
  Sender: FDA-Public Use
  Company Number: HQWYE235225OCT05

PATIENT
  Age: 76 Year
  Sex: Female

DRUGS (4)
  1. CORDARONE [Suspect]
     Dosage: 200 MG 1X PER 1 DAY, ORAL A FEW YEARS
     Route: 048
     Dates: end: 20050401
  2. LISINOPRIL/HYDROCHLOROTHIAZIDE (LISINOPRIL/HYDROCHOROTHIAZIDE) [Concomitant]
  3. ATENOLOL [Concomitant]
  4. MARIVARIN (WARFARIN) [Concomitant]

REACTIONS (6)
  - ASTHENIA [None]
  - BLOOD THYROID STIMULATING HORMONE DECREASED [None]
  - CORNEAL DEPOSITS [None]
  - FATIGUE [None]
  - HYPERTHYROIDISM [None]
  - INSOMNIA [None]
